FAERS Safety Report 7068209-9 (Version None)
Quarter: 2010Q4

REPORT INFORMATION
  Report Type: 
  Country: None (occurrence: None)
  Receive Date: 20101028
  Receipt Date: 20101018
  Transmission Date: 20110411
  Serious: Yes (Death)
  Sender: FDA-Public Use
  Company Number: IT-ROCHE-734246

PATIENT
  Sex: Male

DRUGS (2)
  1. XELODA [Suspect]
     Dosage: DOSE: 625 MG/MQ, FREQUENCY: DAILY.
     Route: 048
     Dates: start: 20100427, end: 20100906
  2. OXALIPLATIN [Concomitant]
     Route: 065

REACTIONS (2)
  - CEREBRAL HAEMATOMA [None]
  - PLATELET DISORDER [None]
